FAERS Safety Report 5869330-0 (Version None)
Quarter: 2008Q3

REPORT INFORMATION
  Report Type: 
  Country: None (occurrence: None)
  Receive Date: 20080828
  Receipt Date: 20020207
  Transmission Date: 20090109
  Serious: Yes (Life-Threatening, Hospitalization)
  Sender: FDA-Public Use
  Company Number: DSA_21492_2002

PATIENT
  Age: 47 Year
  Sex: Female
  Weight: 55 kg

DRUGS (2)
  1. CEDAX [Suspect]
     Indication: ANTIBIOTIC PROPHYLAXIS
     Dosage: 400 MG DAILY PO
     Route: 048
     Dates: start: 20011224, end: 20020103
  2. OMEPRAZOLE [Concomitant]

REACTIONS (4)
  - BLOOD GLUCOSE INCREASED [None]
  - BLOOD IMMUNOGLOBULIN E INCREASED [None]
  - EOSINOPHIL COUNT INCREASED [None]
  - STEVENS-JOHNSON SYNDROME [None]
